FAERS Safety Report 20324345 (Version 1)
Quarter: 2022Q1

REPORT INFORMATION
  Report Type: Spontaneous
  Country: FR (occurrence: FR)
  Receive Date: 20220111
  Receipt Date: 20220111
  Transmission Date: 20220423
  Serious: Yes (Other)
  Sender: FDA-Public Use
  Company Number: FR-CELGENE-FRA-20211208377

PATIENT
  Age: 59 Year
  Sex: Female
  Weight: 60 kg

DRUGS (4)
  1. THALIDOMIDE [Suspect]
     Active Substance: THALIDOMIDE
     Indication: Aphthous ulcer
     Dosage: 50 MILLIGRAM
     Route: 048
     Dates: start: 20210712
  2. THALIDOMIDE [Suspect]
     Active Substance: THALIDOMIDE
     Indication: Off label use
  3. KETAMINE [Suspect]
     Active Substance: KETAMINE
     Indication: Fibromyalgia
     Dosage: 1 PERFUSION/SEMAINE ()
     Route: 041
     Dates: start: 20210712, end: 20210816
  4. COSENTYX [Suspect]
     Active Substance: SECUKINUMAB
     Indication: Ankylosing spondylitis
     Dosage: 150 MILLIGRAM
     Route: 058
     Dates: start: 20210717

REACTIONS (2)
  - Immunisation reaction [Recovered/Resolved]
  - Cardiac failure [Recovering/Resolving]

NARRATIVE: CASE EVENT DATE: 20210825
